FAERS Safety Report 13552995 (Version 2)
Quarter: 2017Q2

REPORT INFORMATION
  Report Type: Spontaneous
  Country: US (occurrence: US)
  Receive Date: 20170517
  Receipt Date: 20170616
  Transmission Date: 20170830
  Serious: No
  Sender: FDA-Public Use
  Company Number: US-PFIZER INC-2017213257

PATIENT
  Age: 22 Year
  Sex: Male

DRUGS (4)
  1. DESOXIMETASONE. [Concomitant]
     Active Substance: DESOXIMETASONE
     Dosage: UNK UNK, AS NEEDED
     Dates: start: 20170314
  2. EUCRISA [Suspect]
     Active Substance: CRISABOROLE
     Indication: DERMATITIS ATOPIC
     Dosage: UNK, 2X/DAY APPLIED TWICE A DAY (BID) AS DIRECTED (APPLY TO FACE TWICE DAILY)
     Route: 061
     Dates: start: 20170319, end: 20170323
  3. HYDROXYZINE [Concomitant]
     Active Substance: HYDROXYZINE HYDROCHLORIDE
     Dosage: UNK UNK, AS NEEDED (ONCE AS NIGHT AS NEEDED)
     Dates: start: 20170314
  4. ZYRTEC [Concomitant]
     Active Substance: CETIRIZINE HYDROCHLORIDE
     Dosage: 10 MG, 1X/DAY
     Dates: start: 20170314

REACTIONS (4)
  - Rash erythematous [Recovered/Resolved]
  - Condition aggravated [Recovered/Resolved]
  - Eczema [Recovered/Resolved]
  - Drug hypersensitivity [Recovered/Resolved]
